FAERS Safety Report 7769183-X (Version None)
Quarter: 2011Q3

REPORT INFORMATION
  Report Type: 
  Country: None (occurrence: None)
  Receive Date: 20110922
  Receipt Date: 20110912
  Transmission Date: 20111222
  Serious: Yes (Other)
  Sender: FDA-Public Use
  Company Number: ES-ROCHE-648243

PATIENT

DRUGS (3)
  1. MYCOPHENOLATE MOFETIL [Suspect]
     Route: 065
  2. MYCOPHENOLATE MOFETIL [Suspect]
     Route: 065
  3. MYCOPHENOLATE MOFETIL [Suspect]
     Dosage: MAINTENANCE DOSE FOR 6-12 WEEKS
     Route: 065

REACTIONS (18)
  - DIARRHOEA [None]
  - WEIGHT DECREASED [None]
  - ACIDOSIS [None]
  - OEDEMA [None]
  - CALICIVIRUS TEST POSITIVE [None]
  - GASTROOESOPHAGEAL REFLUX DISEASE [None]
  - DYSPEPSIA [None]
  - RENAL IMPAIRMENT [None]
  - ABDOMINAL PAIN [None]
  - TRANSPLANT REJECTION [None]
  - CONSTIPATION [None]
  - NAUSEA [None]
  - FLATULENCE [None]
  - LEUKOPENIA [None]
  - VOMITING [None]
  - URINARY TRACT INFECTION [None]
  - ANAEMIA [None]
  - APHTHOUS STOMATITIS [None]
